FAERS Safety Report 7065574-3 (Version None)
Quarter: 2010Q4

REPORT INFORMATION
  Report Type: 
  Country: None (occurrence: None)
  Receive Date: 20101027
  Receipt Date: 20101022
  Transmission Date: 20110411
  Serious: Yes (Death, Hospitalization)
  Sender: FDA-Public Use
  Company Number: DE-BRISTOL-MYERS SQUIBB COMPANY-15352214

PATIENT
  Age: 59 Year
  Sex: Female
  Weight: 50 kg

DRUGS (8)
  1. CETUXIMAB [Suspect]
     Indication: HEAD AND NECK CANCER
     Dosage: 400MG/M2 20SEP-20SEP(1D) ON DAY 1 RESTARTED WITH 250MG/M2 INTERRUPTED-18OCT10
     Route: 042
     Dates: start: 20100920
  2. CISPLATIN [Suspect]
     Indication: HEAD AND NECK CANCER
     Dosage: INTERRUPTED-18OCT10
     Route: 042
     Dates: start: 20100920
  3. PEMETREXED DISODIUM [Suspect]
     Indication: HEAD AND NECK CANCER
     Route: 042
     Dates: start: 20100920
  4. FOLIC ACID [Concomitant]
     Dates: start: 20100909
  5. VITAMIN B-12 [Concomitant]
     Dates: start: 20100909
  6. DEXAMETHASONE [Concomitant]
     Dates: start: 20100914
  7. TEPILTA [Concomitant]
     Dates: start: 20100916
  8. CLEXANE [Concomitant]
     Dates: start: 20100917

REACTIONS (2)
  - PNEUMONIA [None]
  - SEPSIS [None]
